FAERS Safety Report 5390186-7 (Version None)
Quarter: 2007Q3

REPORT INFORMATION
  Report Type: 
  Country: None (occurrence: None)
  Receive Date: 20070716
  Receipt Date: 20070716
  Transmission Date: 20080115
  Serious: No
  Sender: FDA-Public Use
  Company Number: None

PATIENT
  Sex: Female
  Weight: 64.86 kg

DRUGS (8)
  1. TEMOZOLOMIDE [Suspect]
     Dosage: 3770 MG
  2. CIPROFLOXACIN [Concomitant]
  3. COLACE [Concomitant]
  4. DECADRON [Concomitant]
  5. ISOTONIX [Concomitant]
  6. KEPPRA [Concomitant]
  7. PRILOSEC [Concomitant]
  8. TYLENOL (CAPLET) [Concomitant]

REACTIONS (5)
  - ASTHENIA [None]
  - FEELING ABNORMAL [None]
  - HEADACHE [None]
  - MALAISE [None]
  - URINARY TRACT INFECTION [None]
